FAERS Safety Report 14587334 (Version 1)
Quarter: 2018Q1

REPORT INFORMATION
  Report Type: Spontaneous
  Country: GB (occurrence: GB)
  Receive Date: 20180301
  Receipt Date: 20180301
  Transmission Date: 20180509
  Serious: Yes (Other)
  Sender: FDA-Public Use
  Company Number: GB-PFIZER INC-2018079959

PATIENT
  Age: 78 Year
  Sex: Female

DRUGS (13)
  1. TRIMETHOPRIM. [Concomitant]
     Active Substance: TRIMETHOPRIM
     Indication: URINARY TRACT INFECTION
     Dosage: 2 DF, 1X/DAY FOR 7 DAYS
     Dates: start: 20180129
  2. OILATUM /00103901/ [Concomitant]
     Dosage: UNK UNK, AS NEEDED
     Dates: start: 20170528
  3. NITROFURANTOIN. [Concomitant]
     Active Substance: NITROFURANTOIN
     Dosage: 2 DF, 1X/DAY FOR 7 DAYS
     Dates: start: 20171106
  4. CAPASAL [Concomitant]
     Dosage: 1 DF, 1X/DAY
     Dates: start: 20170528
  5. SOLIFENACIN [Concomitant]
     Active Substance: SOLIFENACIN
     Dosage: 1 DF, 1X/DAY
     Dates: start: 20180127, end: 20180129
  6. SIMVASTATIN. [Concomitant]
     Active Substance: SIMVASTATIN
     Dosage: 1 DF, 1X/DAY NIGHT.
     Dates: start: 20170528
  7. KETOPROFEN. [Concomitant]
     Active Substance: KETOPROFEN
     Dosage: 2 DF, 1X/DAY APPLY.
     Dates: start: 20180127
  8. ATORVASTATIN [Concomitant]
     Active Substance: ATORVASTATIN
     Dosage: 1 DF, 1X/DAY NIGHT.
     Dates: start: 20171106, end: 20171106
  9. DERMOL /01330701/ [Concomitant]
     Dosage: UNK APPLY TO SKIN OR USE AS SOAP SUBSTITUTE.
     Route: 061
     Dates: start: 20170528
  10. DOVOBET [Concomitant]
     Active Substance: BETAMETHASONE\CALCIPOTRIENE
     Dosage: 1 DF, 1X/DAY (APPLIED)
     Dates: start: 20170528
  11. DOXAZOSIN MESILATE [Suspect]
     Active Substance: DOXAZOSIN MESYLATE
     Dosage: UNK
     Dates: start: 20180129
  12. ACITRETIN. [Concomitant]
     Active Substance: ACITRETIN
     Dosage: 1 DF, 1X/DAY
     Dates: start: 20171103
  13. EPADERM [Concomitant]
     Active Substance: MINERAL OIL\PETROLATUM\WAX, EMULSIFYING
     Dosage: UNK USE AS DIRECTED.
     Dates: start: 20170528

REACTIONS (5)
  - Dizziness [Unknown]
  - Chest discomfort [Recovered/Resolved]
  - Wheezing [Unknown]
  - Malaise [Recovered/Resolved]
  - Dry mouth [Recovered/Resolved]

NARRATIVE: CASE EVENT DATE: 20180130
